FAERS Safety Report 4500559-X (Version None)
Quarter: 2004Q4

REPORT INFORMATION
  Report Type: 
  Country: None (occurrence: None)
  Receive Date: 20041115
  Receipt Date: 20041103
  Transmission Date: 20050328
  Serious: Yes (Other)
  Sender: FDA-Public Use
  Company Number: ES-JNJFOC-20041101494

PATIENT

DRUGS (1)
  1. ABCIXIMAB [Suspect]
     Indication: ANGIOPLASTY
     Route: 042

REACTIONS (3)
  - CARDIAC TAMPONADE [None]
  - CORONARY ARTERY PERFORATION [None]
  - PROCEDURAL COMPLICATION [None]
